FAERS Safety Report 20444620 (Version 1)
Quarter: 2022Q1

REPORT INFORMATION
  Report Type: Report from Study
  Country: US (occurrence: US)
  Receive Date: 20220208
  Receipt Date: 20220208
  Transmission Date: 20220423
  Serious: Yes (Other)
  Sender: FDA-Public Use
  Company Number: US-MYLANLABS-2022M1010953

PATIENT

DRUGS (11)
  1. ROCURONIUM [Suspect]
     Active Substance: ROCURONIUM BROMIDE
     Indication: Induction of anaesthesia
     Dosage: 1 MILLIGRAM/KILOGRAM (THE DOSE WAS REPEATED IN SMALLER DOSES AS NEEDED THROUGHOUT....
     Route: 042
  2. DEXMEDETOMIDINE [Suspect]
     Active Substance: DEXMEDETOMIDINE
     Indication: Maintenance of anaesthesia
     Dosage: 1 MICROGRAM/KILOGRAM (SLOW LOADING DOSE FOR OVER 10 MINUTES)
     Route: 065
  3. DEXMEDETOMIDINE [Suspect]
     Active Substance: DEXMEDETOMIDINE
     Dosage: A CONTINUOUS INFUSION TITRATED FROM 1 MICROG/KG/HR TO 8 MICROG/KG/HR
     Route: 065
  4. FENTANYL [Suspect]
     Active Substance: FENTANYL
     Indication: Maintenance of anaesthesia
     Dosage: BOLUS THROUGHOUT THE PROCEDURE BASED ON VITAL SIGNS AND PATIENT CONDITION
     Route: 065
  5. REMIFENTANIL [Suspect]
     Active Substance: REMIFENTANIL
     Indication: Maintenance of anaesthesia
     Dosage: 0.2 MICROGRAM/KILOGRAM, QMINUTE (INFUSION)
     Route: 065
  6. EPINEPHRINE [Suspect]
     Active Substance: EPINEPHRINE
     Indication: Infiltration anaesthesia
     Dosage: UNK
     Route: 065
  7. SEVOFLURANE [Suspect]
     Active Substance: SEVOFLURANE
     Indication: Induction of anaesthesia
     Dosage: MINIMUM ALVEOLAR CONCENTRATION (MAC) OF 3.5
     Route: 055
  8. NITROUS OXIDE [Suspect]
     Active Substance: NITROUS OXIDE
     Indication: Induction of anaesthesia
     Dosage: MINIMUM ALVEOLAR CONCENTRATION (MAC) OF 0.75
     Route: 055
  9. ATROPINE [Suspect]
     Active Substance: ATROPINE
     Indication: Induction of anaesthesia
     Dosage: 20 MICROGRAM/KILOGRAM
     Route: 042
  10. ACETAMINOPHEN [Suspect]
     Active Substance: ACETAMINOPHEN
     Indication: Induction of anaesthesia
     Dosage: 40 MILLIGRAM/KILOGRAM (ONLY ONE DOSE)
     Route: 054
  11. BUPIVACAINE [Suspect]
     Active Substance: BUPIVACAINE
     Indication: Induction of anaesthesia
     Dosage: 0.25 PERCENT
     Route: 065

REACTIONS (3)
  - Apnoea [Unknown]
  - Hypoxia [Unknown]
  - Off label use [Unknown]
